FAERS Safety Report 21288620 (Version 1)
Quarter: 2022Q3

REPORT INFORMATION
  Report Type: Spontaneous
  Country: US (occurrence: US)
  Receive Date: 20220902
  Receipt Date: 20220902
  Transmission Date: 20221027
  Serious: Yes (Hospitalization)
  Sender: FDA-Public Use
  Company Number: US-ABBVIE-22K-163-4427106-00

PATIENT
  Sex: Female

DRUGS (2)
  1. VENETOCLAX [Suspect]
     Active Substance: VENETOCLAX
     Indication: Acute myeloid leukaemia
     Dosage: TAKE 2 TABLETS BY MOUTH EVERY DAY ON DAYS 1-14 OF EACH CYCLE
     Route: 048
  2. VENETOCLAX [Suspect]
     Active Substance: VENETOCLAX
     Indication: Myelodysplastic syndrome

REACTIONS (1)
  - Hospitalisation [Unknown]
